FAERS Safety Report 7678248-2 (Version None)
Quarter: 2011Q3

REPORT INFORMATION
  Report Type: 
  Country: None (occurrence: None)
  Receive Date: 20110811
  Receipt Date: 20110805
  Transmission Date: 20111222
  Serious: Yes (Hospitalization)
  Sender: FDA-Public Use
  Company Number: US-ABBOTT-11P-163-0844842-00

PATIENT
  Age: 51 Year
  Sex: Male

DRUGS (5)
  1. HUMIRA [Suspect]
     Indication: CROHN'S DISEASE
     Dates: start: 20100401
  2. HUMIRA [Suspect]
     Dates: start: 20100101
  3. IMURAN [Concomitant]
     Indication: CROHN'S DISEASE
     Route: 048
  4. CIPROFLOXACIN [Concomitant]
     Indication: PROPHYLAXIS
  5. VALTREX [Concomitant]
     Indication: ORAL HERPES

REACTIONS (6)
  - INJECTION SITE HAEMATOMA [None]
  - SCAR [None]
  - CROHN'S DISEASE [None]
  - LOWER RESPIRATORY TRACT INFECTION [None]
  - ANASTOMOTIC ULCER [None]
  - HYPERSENSITIVITY [None]
